FAERS Safety Report 19108983 (Version 1)
Quarter: 2021Q2

REPORT INFORMATION
  Report Type: Spontaneous
  Country: CN (occurrence: CN)
  Receive Date: 20210409
  Receipt Date: 20210409
  Transmission Date: 20210717
  Serious: No
  Sender: FDA-Public Use
  Company Number: CN-LUPIN PHARMACEUTICALS INC.-2021-04308

PATIENT
  Age: 1 Year
  Sex: Male

DRUGS (1)
  1. METFORMIN [Suspect]
     Active Substance: METFORMIN HYDROCHLORIDE
     Indication: INFLAMMATORY MYOFIBROBLASTIC TUMOUR
     Dosage: 7 MILLIGRAM/KILOGRAM, TID AFTER MEALS
     Route: 048

REACTIONS (1)
  - Off label use [Unknown]
